FAERS Safety Report 10967613 (Version 2)
Quarter: 2015Q2

REPORT INFORMATION
  Report Type: Other
  Country: IT (occurrence: IT)
  Receive Date: 20150330
  Receipt Date: 20150531
  Transmission Date: 20150821
  Serious: Yes (Death, Hospitalization, Other)
  Sender: FDA-Public Use
  Company Number: IT-MYLANLABS-2015M1009056

PATIENT

DRUGS (12)
  1. SIMVASTATINA MYLAN GENERICS [Suspect]
     Active Substance: SIMVASTATIN
     Indication: HYPERCHOLESTEROLAEMIA
     Dosage: 20 MG DAILY
     Route: 048
     Dates: start: 20110321, end: 20150303
  2. EXELON                             /01383204/ [Concomitant]
     Indication: DEMENTIA ALZHEIMER^S TYPE
     Dosage: 1 DF
     Route: 062
     Dates: start: 20100415, end: 20150303
  3. BENTELAN [Suspect]
     Active Substance: BETAMETHASONE SODIUM PHOSPHATE
     Dosage: 1 DF, QD
     Route: 048
     Dates: start: 20150302, end: 20150303
  4. TICLOPIDINA [Concomitant]
     Active Substance: TICLOPIDINE
     Indication: PRODUCT USED FOR UNKNOWN INDICATION
     Dosage: 2 DF
     Route: 048
     Dates: start: 20080722, end: 20150303
  5. CITALOPRAM DOC GENERICI            /00582603/ [Interacting]
     Active Substance: CITALOPRAM HYDROCHLORIDE
     Indication: DEPRESSION
     Dosage: 20 MG DAILY
     Route: 048
     Dates: start: 20100716, end: 20150303
  6. EBIXA [Concomitant]
     Active Substance: MEMANTINE HYDROCHLORIDE
     Indication: DEMENTIA ALZHEIMER^S TYPE
     Dosage: 10 MG
     Route: 048
     Dates: start: 20120507, end: 20150303
  7. CONVERTEN [Concomitant]
     Indication: HYPERTENSION
     Dosage: 20 MG
     Route: 048
     Dates: start: 20060123
  8. LANSOPRAZOLO EG [Concomitant]
     Indication: GASTROOESOPHAGEAL REFLUX DISEASE
     Dosage: 30 MG
     Route: 048
     Dates: start: 20070611, end: 20150303
  9. CONVERTEN [Concomitant]
     Dosage: 20 MG
     Route: 048
     Dates: start: 20120302, end: 20150303
  10. MADOPAR [Concomitant]
     Active Substance: BENSERAZIDE HYDROCHLORIDE\LEVODOPA
     Indication: PARKINSONISM
     Dosage: 375 MG, UNK
     Route: 048
     Dates: start: 20070803, end: 20150303
  11. BENTELAN [Suspect]
     Active Substance: BETAMETHASONE SODIUM PHOSPHATE
     Indication: OEDEMA PERIPHERAL
     Dosage: 2 DF, QD
     Route: 048
     Dates: start: 20150227, end: 20150301
  12. EUTIROX [Concomitant]
     Active Substance: LEVOTHYROXINE SODIUM
     Indication: HYPOTHYROIDISM
     Dosage: 1 DF DAILY
     Route: 048
     Dates: start: 20080201, end: 20150303

REACTIONS (4)
  - Drug interaction [Fatal]
  - Femur fracture [Recovered/Resolved]
  - Drug-induced liver injury [Fatal]
  - Coma hepatic [Fatal]

NARRATIVE: CASE EVENT DATE: 2014
